FAERS Safety Report 8473526-1 (Version None)
Quarter: 2012Q2

REPORT INFORMATION
  Report Type: 
  Country: None (occurrence: None)
  Receive Date: 20120622
  Receipt Date: 20120622
  Transmission Date: 20120825
  Serious: Yes (Life-Threatening)
  Sender: FDA-Public Use
  Company Number: None

PATIENT
  Sex: Male
  Weight: 116.8 kg

DRUGS (11)
  1. FIBER CAPS [Concomitant]
  2. GABAPENTIN [Concomitant]
  3. ASPIRIN ADULT LOW STRENGTH [Concomitant]
  4. ALLOPURINOL [Concomitant]
  5. TOPROL-XL [Concomitant]
  6. PYRIDOSTIGMINE BROMIDE [Concomitant]
  7. ANDROGEL [Suspect]
     Indication: ANDROGEN DEFICIENCY
     Dosage: 1 APPLICATION DAILY TOP
     Route: 061
     Dates: start: 20120502, end: 20120515
  8. ANDROGEL [Suspect]
     Indication: SEXUAL DYSFUNCTION
     Dosage: 1 APPLICATION DAILY TOP
     Route: 061
     Dates: start: 20120502, end: 20120515
  9. PRAVASTATIN [Concomitant]
  10. NOVOLOG [Concomitant]
  11. LANTUS [Concomitant]

REACTIONS (2)
  - OEDEMA PERIPHERAL [None]
  - BLOOD PRESSURE INCREASED [None]
